FAERS Safety Report 17127646 (Version 1)
Quarter: 2019Q4

REPORT INFORMATION
  Report Type: Spontaneous
  Country: BR (occurrence: BR)
  Receive Date: 20191209
  Receipt Date: 20191209
  Transmission Date: 20200122
  Serious: Yes (Other)
  Sender: FDA-Public Use
  Company Number: BR-AMGEN-BRASP2019203404

PATIENT
  Age: 70 Year
  Sex: Female

DRUGS (1)
  1. ENBREL [Suspect]
     Active Substance: ETANERCEPT
     Indication: PRODUCT USED FOR UNKNOWN INDICATION
     Dosage: UNK
     Route: 065
     Dates: start: 2009

REACTIONS (13)
  - Joint swelling [Unknown]
  - Foot deformity [Unknown]
  - Sciatic nerve injury [Unknown]
  - Pain in extremity [Unknown]
  - Arthritis [Unknown]
  - Bone pain [Unknown]
  - Tendon rupture [Recovered/Resolved]
  - Spinal disorder [Unknown]
  - Finger deformity [Unknown]
  - Rib fracture [Unknown]
  - Fall [Unknown]
  - Gait disturbance [Unknown]
  - Osteoarthritis [Unknown]

NARRATIVE: CASE EVENT DATE: 201904
